FAERS Safety Report 23185815 (Version 1)
Quarter: 2023Q4

REPORT INFORMATION
  Report Type: Spontaneous
  Country: US (occurrence: US)
  Receive Date: 20231115
  Receipt Date: 20231115
  Transmission Date: 20240110
  Serious: No
  Sender: FDA-Public Use
  Company Number: US-OTSUKA-2023_005437

PATIENT
  Sex: Male
  Weight: 99.79 kg

DRUGS (1)
  1. NUEDEXTA [Suspect]
     Active Substance: DEXTROMETHORPHAN HYDROBROMIDE\QUINIDINE SULFATE
     Indication: Mood swings
     Dosage: UNK (20 MG DEXTROMETHORPHAN HYDROBROMIDE AND 10 MG QUINIDINE SULFATE)
     Route: 065

REACTIONS (3)
  - Adverse event [Unknown]
  - Drug effective for unapproved indication [Unknown]
  - Inability to afford medication [Unknown]
